FAERS Safety Report 4556039-9 (Version None)
Quarter: 2005Q1

REPORT INFORMATION
  Report Type: 
  Country: None (occurrence: None)
  Receive Date: 20050119
  Receipt Date: 20050118
  Transmission Date: 20050727
  Serious: Yes (Hospitalization)
  Sender: FDA-Public Use
  Company Number: US-GLAXOSMITHKLINE-A0541110A

PATIENT
  Age: 12 Year
  Sex: Female

DRUGS (6)
  1. THORAZINE [Suspect]
     Indication: ABNORMAL BEHAVIOUR
     Dosage: 75MG UNKNOWN
     Route: 048
     Dates: start: 20040101, end: 20040901
  2. HALDOL [Concomitant]
     Indication: ABNORMAL BEHAVIOUR
  3. ATIVAN [Concomitant]
     Indication: ABNORMAL BEHAVIOUR
  4. ZOLOFT [Concomitant]
     Indication: DRUG USE FOR UNKNOWN INDICATION
  5. EFFEXOR [Concomitant]
     Indication: DRUG USE FOR UNKNOWN INDICATION
  6. ZYPREXA [Concomitant]
     Indication: DRUG USE FOR UNKNOWN INDICATION

REACTIONS (3)
  - CHEST PAIN [None]
  - SUICIDAL IDEATION [None]
  - WEIGHT INCREASED [None]
